FAERS Safety Report 22976067 (Version 3)
Quarter: 2024Q1

REPORT INFORMATION
  Report Type: Report from Study
  Country: US (occurrence: US)
  Receive Date: 20230925
  Receipt Date: 20240113
  Transmission Date: 20240410
  Serious: Yes (Hospitalization)
  Sender: FDA-Public Use
  Company Number: US-ABBVIE-5420250

PATIENT
  Sex: Male

DRUGS (2)
  1. HUMIRA [Suspect]
     Active Substance: ADALIMUMAB
     Indication: Psoriasis
     Dosage: FORM STRENGTH- 40 MILLIGRAM, HUMIRA CITRATE FREE PEN
     Route: 058
     Dates: start: 20230516, end: 202309
  2. HUMIRA [Suspect]
     Active Substance: ADALIMUMAB
     Dosage: FORM STRENGTH: 40 MG  HUMIRA CITRATE FREE PEN
     Route: 058
     Dates: start: 202312

REACTIONS (5)
  - Scapula fracture [Unknown]
  - Pelvic fracture [Unknown]
  - Psoriasis [Unknown]
  - Fall [Unknown]
  - Musculoskeletal disorder [Recovering/Resolving]

NARRATIVE: CASE EVENT DATE: 20230101
